FAERS Safety Report 12747148 (Version 1)
Quarter: 2016Q3

REPORT INFORMATION
  Report Type: Spontaneous
  Country: ES (occurrence: ES)
  Receive Date: 20160915
  Receipt Date: 20160915
  Transmission Date: 20161109
  Serious: Yes (Death, Other)
  Sender: FDA-Public Use
  Company Number: PHHY2016ES125104

PATIENT
  Age: 16 Year
  Sex: Female

DRUGS (29)
  1. LIPOSOMAL DOXORUBICIN HCL [Concomitant]
     Active Substance: DOXORUBICIN HYDROCHLORIDE
     Indication: METASTASES TO LUNG
     Dosage: 50 MG/M2, UNK, DAY 1 EVERY 21 DAYS
     Route: 065
     Dates: start: 201203
  2. PACLITAX NAB [Concomitant]
     Active Substance: PACLITAXEL
     Indication: PRODUCT USED FOR UNKNOWN INDICATION
     Dosage: 150 MG/M2, QW
     Route: 065
  3. CAPECITABINE. [Suspect]
     Active Substance: CAPECITABINE
     Indication: METASTASES TO LUNG
  4. GEMCITABINE [Suspect]
     Active Substance: GEMCITABINE\GEMCITABINE HYDROCHLORIDE
     Indication: ADRENOCORTICAL CARCINOMA
     Dosage: 800 MG/M2, UNK
     Route: 065
     Dates: start: 201206
  5. IFOSFAMIDE. [Concomitant]
     Active Substance: IFOSFAMIDE
     Indication: METASTASES TO LUNG
  6. PEGFILGRASTIM [Concomitant]
     Active Substance: PEGFILGRASTIM
     Indication: ADRENOCORTICAL CARCINOMA
     Route: 065
  7. CISPLATIN. [Suspect]
     Active Substance: CISPLATIN
     Indication: METASTASES TO LUNG
     Dosage: 100 MG/M2, UNK, ON DAY 1
     Route: 065
  8. DOXORUBICIN [Suspect]
     Active Substance: DOXORUBICIN
     Indication: ADRENOCORTICAL CARCINOMA
     Dosage: 50 MG/M2, UNK ON DAY 1 EVERY 21 DAYS
     Route: 065
  9. CAPECITABINE. [Suspect]
     Active Substance: CAPECITABINE
     Indication: ADRENOCORTICAL CARCINOMA
     Dosage: 800 MG, UNK
     Route: 065
     Dates: start: 201206
  10. SORAFENIB [Concomitant]
     Active Substance: SORAFENIB
     Indication: METASTASES TO LIVER
     Dosage: 400 MG, Q12H
     Route: 065
     Dates: start: 201008, end: 201010
  11. SORAFENIB [Concomitant]
     Active Substance: SORAFENIB
     Indication: METASTASES TO KIDNEY
  12. LIPOSOMAL DOXORUBICIN HCL [Concomitant]
     Active Substance: DOXORUBICIN HYDROCHLORIDE
     Indication: ADRENOCORTICAL CARCINOMA
     Dosage: 20 MG/M2, UNK, ON DAY 1 EVERY 21 DAYS
     Route: 065
  13. PEGFILGRASTIM [Concomitant]
     Active Substance: PEGFILGRASTIM
     Indication: METASTASES TO LUNG
  14. MESNA. [Concomitant]
     Active Substance: MESNA
     Indication: ADRENOCORTICAL CARCINOMA
     Dosage: 2000 MG/M2, UNK ON DAY 1-3
     Route: 065
     Dates: start: 201012
  15. ERYTHROPOETIN [Concomitant]
     Active Substance: ERYTHROPOIETIN
     Indication: ADRENOCORTICAL CARCINOMA
     Route: 065
  16. ERYTHROPOETIN [Concomitant]
     Active Substance: ERYTHROPOIETIN
     Indication: METASTASES TO LUNG
  17. SORAFENIB [Concomitant]
     Active Substance: SORAFENIB
     Indication: METASTASES TO RETROPERITONEUM
  18. IFOSFAMIDE. [Concomitant]
     Active Substance: IFOSFAMIDE
     Indication: ADRENOCORTICAL CARCINOMA
     Dosage: 2000 MG/M2, UNK
     Route: 065
     Dates: start: 201012
  19. BEVACIZUMAB [Concomitant]
     Active Substance: BEVACIZUMAB
     Indication: PRODUCT USED FOR UNKNOWN INDICATION
     Dosage: 15 MG/KG, UNK, EVERY 15 DAYS
     Route: 065
  20. ETOPOSIDE. [Suspect]
     Active Substance: ETOPOSIDE
     Indication: ADRENOCORTICAL CARCINOMA
     Dosage: 100 MG/M2, UNK, DAY 1,2,3 EVERY 21 DAYS
     Route: 065
  21. CISPLATIN. [Suspect]
     Active Substance: CISPLATIN
     Indication: ADRENOCORTICAL CARCINOMA
     Dosage: 50 MG/M2, UNK ON DAY 1 EVERY 21 DAYS
     Route: 065
  22. CISPLATIN. [Suspect]
     Active Substance: CISPLATIN
     Indication: HEPATIC LESION
     Dosage: 50 MG/M2, UNK, DAY 1
     Route: 065
     Dates: start: 201203
  23. ETOPOSIDE. [Suspect]
     Active Substance: ETOPOSIDE
     Indication: METASTASES TO LUNG
  24. MESNA. [Concomitant]
     Active Substance: MESNA
     Indication: METASTASES TO LUNG
  25. DOXORUBICIN [Suspect]
     Active Substance: DOXORUBICIN
     Indication: METASTASES TO LUNG
  26. DOXORUBICIN [Suspect]
     Active Substance: DOXORUBICIN
     Indication: HEPATIC LESION
  27. GEMCITABINE [Suspect]
     Active Substance: GEMCITABINE\GEMCITABINE HYDROCHLORIDE
     Indication: METASTASES TO LUNG
  28. FILGRASTIM [Concomitant]
     Active Substance: FILGRASTIM
     Indication: ADRENOCORTICAL CARCINOMA
     Dosage: 300 UG
     Route: 065
  29. FILGRASTIM [Concomitant]
     Active Substance: FILGRASTIM
     Indication: METASTASES TO LUNG

REACTIONS (9)
  - Pneumonia [Unknown]
  - Disease progression [Fatal]
  - Urinary tract infection [Unknown]
  - Pancytopenia [Unknown]
  - Pyrexia [Recovering/Resolving]
  - Adrenocortical carcinoma [Fatal]
  - Intracardiac thrombus [Unknown]
  - Gastroenteritis [Unknown]
  - Mucosal inflammation [Unknown]
